FAERS Safety Report 18477287 (Version 1)
Quarter: 2020Q4

REPORT INFORMATION
  Report Type: Spontaneous
  Country: SE (occurrence: SE)
  Receive Date: 20201107
  Receipt Date: 20201107
  Transmission Date: 20210114
  Serious: Yes (Hospitalization)
  Sender: FDA-Public Use
  Company Number: SE-TEVA-2020-SE-1845042

PATIENT
  Age: 55 Year
  Sex: Male
  Weight: 82 kg

DRUGS (4)
  1. PREDNISOLONE. [Suspect]
     Active Substance: PREDNISOLONE
     Indication: COVID-19
     Dosage: 40 MILLIGRAM DAILY;
     Dates: start: 20200413, end: 20200415
  2. HALDOL [Concomitant]
     Active Substance: HALOPERIDOL
     Dates: start: 20200413, end: 20200415
  3. OXASCAND [Concomitant]
     Active Substance: OXAZEPAM
     Dates: start: 20200413, end: 20200418
  4. ELIQUIS [Concomitant]
     Active Substance: APIXABAN
     Dates: start: 20200410, end: 20200520

REACTIONS (4)
  - Mania [Recovered/Resolved]
  - Tachyphrenia [Recovered/Resolved]
  - Disturbance in attention [Recovered/Resolved]
  - Insomnia [Recovered/Resolved]

NARRATIVE: CASE EVENT DATE: 20200414
